FAERS Safety Report 21659382 (Version 2)
Quarter: 2022Q4

REPORT INFORMATION
  Report Type: Report from Study
  Country: CN (occurrence: CN)
  Receive Date: 20221129
  Receipt Date: 20221228
  Transmission Date: 20230113
  Serious: Yes (Life-Threatening, Other)
  Sender: FDA-Public Use
  Company Number: CN-FOSUNKITE-FOSUNKITE-20220637

PATIENT
  Age: 53 Year
  Sex: Female

DRUGS (14)
  1. AXICABTAGENE CILOLEUCEL [Suspect]
     Active Substance: AXICABTAGENE CILOLEUCEL
     Indication: Non-Hodgkin^s lymphoma
     Dosage: 68 ML
     Route: 042
     Dates: start: 20221115
  2. CYCLOPHOSPHAMIDE [Concomitant]
     Active Substance: CYCLOPHOSPHAMIDE
     Indication: Lymphodepletion
     Dosage: 915 MG, QD
     Route: 042
     Dates: start: 20221110, end: 20221112
  3. FLUDARABINE [Concomitant]
     Active Substance: FLUDARABINE PHOSPHATE
     Indication: Lymphodepletion
     Dosage: 54.9 MG, QD
     Route: 042
     Dates: start: 20221110, end: 20221112
  4. MOXIFLOXACIN [Concomitant]
     Active Substance: MOXIFLOXACIN
     Indication: Infection
     Dosage: 0.4 G, QD
     Route: 042
     Dates: start: 20221120
  5. GRANULOCYTE COLONY-STIMULATING FACTOR NOS [Concomitant]
     Active Substance: GRANULOCYTE COLONY-STIMULATING FACTOR NOS
     Indication: White blood cell count decreased
     Dosage: 300 UG, QD
     Route: 058
     Dates: start: 20221120
  6. GRANULOCYTE COLONY-STIMULATING FACTOR NOS [Concomitant]
     Active Substance: GRANULOCYTE COLONY-STIMULATING FACTOR NOS
     Indication: Neutrophil count decreased
  7. IBUPROFEN [Concomitant]
     Active Substance: IBUPROFEN
     Indication: Pyrexia
     Dosage: 0.4 G
     Route: 048
     Dates: start: 20221121
  8. FLUCONAZOLE [Concomitant]
     Active Substance: FLUCONAZOLE
     Dosage: 0.4 G, QD
     Route: 042
     Dates: start: 20221121
  9. OXYGEN [Concomitant]
     Active Substance: OXYGEN
     Dosage: 3 L/MIN
     Dates: start: 20221122
  10. FUROSEMIDE [Concomitant]
     Active Substance: FUROSEMIDE
     Indication: Dysuria
     Dosage: 20 MG, QD
     Dates: start: 20221122
  11. HYDROCHLOROTHIAZIDE [Concomitant]
     Active Substance: HYDROCHLOROTHIAZIDE
     Indication: Dysuria
     Dosage: 25 MG, QD
     Route: 048
     Dates: start: 20221122
  12. SPIRONOLACTONE [Concomitant]
     Active Substance: SPIRONOLACTONE
     Indication: Dysuria
     Dosage: 20 MG, QD
     Route: 048
     Dates: start: 20221122
  13. METOPROLOL TARTRATE [Concomitant]
     Active Substance: METOPROLOL TARTRATE
     Indication: Arrhythmia
     Dosage: 12.5 MG, BID
     Route: 048
     Dates: start: 20221122
  14. MEROPENEM [Concomitant]
     Active Substance: MEROPENEM
     Indication: Infection
     Dosage: 1.0 G, Q84HR
     Route: 042
     Dates: start: 20221122

REACTIONS (2)
  - Cytokine release syndrome [Unknown]
  - Embolism [Unknown]

NARRATIVE: CASE EVENT DATE: 20221120
